FAERS Safety Report 15834554 (Version 1)
Quarter: 2019Q1

REPORT INFORMATION
  Report Type: Report from Study
  Country: FR (occurrence: FR)
  Receive Date: 20190116
  Receipt Date: 20190116
  Transmission Date: 20190417
  Serious: Yes (Life-Threatening, Hospitalization, Other)
  Sender: FDA-Public Use
  Company Number: FR-PFIZER INC-2017404336

PATIENT
  Age: 42 Year
  Sex: Male
  Weight: 103 kg

DRUGS (5)
  1. LORLATINIB [Suspect]
     Active Substance: LORLATINIB
     Indication: LUNG ADENOCARCINOMA
     Dosage: 100 MG, 1X/DAY
     Route: 048
     Dates: start: 20161114, end: 20180622
  2. LORLATINIB [Suspect]
     Active Substance: LORLATINIB
     Dosage: 75 UNK, UNK
     Dates: start: 20181114, end: 20181210
  3. LEVOTHYROX [Concomitant]
     Active Substance: LEVOTHYROXINE
     Dosage: 220 UG, 1X/DAY
     Route: 048
  4. KARDEGIC [Suspect]
     Active Substance: ASPIRIN DL-LYSINE
     Indication: CEREBRAL ISCHAEMIA
     Dosage: 75 MG, 1X/DAY
     Route: 048
     Dates: start: 20170308, end: 20180813
  5. LEVOTHYROX [Concomitant]
     Active Substance: LEVOTHYROXINE
     Indication: HYPOTHYROIDISM
     Dosage: 225 UG, 1X/DAY
     Route: 048

REACTIONS (9)
  - Hypercholesterolaemia [Recovered/Resolved]
  - Oedema peripheral [Recovered/Resolved]
  - Subdural haematoma [Not Recovered/Not Resolved]
  - Hypertriglyceridaemia [Recovered/Resolved]
  - Monoplegia [Recovered/Resolved]
  - Subdural haematoma [Recovering/Resolving]
  - Epilepsy [Recovered/Resolved]
  - Aphasia [Recovering/Resolving]
  - Dysarthria [Unknown]

NARRATIVE: CASE EVENT DATE: 20161205
